FAERS Safety Report 5988663-0 (Version None)
Quarter: 2008Q4

REPORT INFORMATION
  Report Type: 
  Country: None (occurrence: None)
  Receive Date: 20081210
  Receipt Date: 20081128
  Transmission Date: 20090506
  Serious: Yes (Hospitalization, Other)
  Sender: FDA-Public Use
  Company Number: GB-PFIZER INC-2008101184

PATIENT

DRUGS (8)
  1. CHAMPIX [Suspect]
     Indication: SMOKING CESSATION THERAPY
     Route: 048
     Dates: start: 20080828, end: 20080910
  2. ACETYLSALICYLIC ACID [Concomitant]
     Dosage: 75 MG, UNK
     Route: 048
     Dates: start: 20080701
  3. DOTHIEPIN HYDROCHLORIDE [Concomitant]
     Indication: DEPRESSION
     Dosage: 75 MG, UNK
     Dates: end: 20080819
  4. MIRTAZAPINE [Concomitant]
  5. OMEPRAZOLE [Concomitant]
     Indication: ABDOMINAL PAIN
     Dosage: 20 MG, UNK
     Route: 048
     Dates: start: 20080701
  6. PROGYNOVA [Concomitant]
     Indication: HORMONE REPLACEMENT THERAPY
     Dosage: 2 MG, UNK
  7. TEMAZEPAM [Concomitant]
     Indication: INSOMNIA
     Dosage: 10 MG, UNK
     Route: 048
     Dates: start: 20080701
  8. THIAMINE [Concomitant]
     Indication: ALCOHOL USE
     Dosage: 100 MG, UNK
     Route: 048

REACTIONS (1)
  - CONFUSIONAL STATE [None]
